FAERS Safety Report 24816127 (Version 2)
Quarter: 2025Q3

REPORT INFORMATION
  Report Type: Spontaneous
  Country: US (occurrence: US)
  Receive Date: 20250107
  Receipt Date: 20250810
  Transmission Date: 20251021
  Serious: Yes (Hospitalization, Other)
  Sender: ALEXION PHARMACEUTICALS
  Company Number: US-AstraZeneca-CH-00777378A

PATIENT
  Age: 66 Year
  Sex: Male
  Weight: 93.8 kg

DRUGS (12)
  1. LYNPARZA [Suspect]
     Active Substance: OLAPARIB
     Indication: Peritoneal mesothelioma malignant
     Dosage: 300 MILLIGRAM, Q12H
     Dates: start: 20241224
  2. TYLENOL [Concomitant]
     Active Substance: ACETAMINOPHEN
  3. LIPITOR [Concomitant]
     Active Substance: ATORVASTATIN CALCIUM
  4. CHILDREN ASTEPRO ALLERGY [Concomitant]
     Active Substance: AZELASTINE HYDROCHLORIDE
  5. ELIQUIS [Concomitant]
     Active Substance: APIXABAN
  6. FLONASE [Concomitant]
     Active Substance: FLUTICASONE PROPIONATE
  7. CORTEF [Concomitant]
     Active Substance: HYDROCORTISONE
  8. ASPERCREME WITH LIDOCAINE [Concomitant]
     Active Substance: LIDOCAINE
  9. SINGULAIR [Concomitant]
     Active Substance: MONTELUKAST SODIUM
  10. OXYCODONE [Concomitant]
     Active Substance: OXYCODONE
  11. POLYVINYL ALCOHOL [Concomitant]
     Active Substance: POLYVINYL ALCOHOL
  12. REVATIO [Concomitant]
     Active Substance: SILDENAFIL CITRATE

REACTIONS (3)
  - Nausea [Recovering/Resolving]
  - Vomiting [Recovering/Resolving]
  - Acute kidney injury [Recovering/Resolving]

NARRATIVE: CASE EVENT DATE: 20241231
